FAERS Safety Report 15057510 (Version 2)
Quarter: 2018Q2

REPORT INFORMATION
  Report Type: Report from Study
  Country: None (occurrence: DE)
  Receive Date: 20180625
  Receipt Date: 20180630
  Transmission Date: 20180711
  Serious: Yes (Hospitalization, Other)
  Sender: FDA-Public Use
  Company Number: DE-ABBVIE-18K-062-2365170-00

PATIENT
  Age: 45 Year
  Sex: Female

DRUGS (2)
  1. PLAVIX [Concomitant]
     Active Substance: CLOPIDOGREL BISULFATE
     Indication: PRODUCT USED FOR UNKNOWN INDICATION
  2. HUMIRA [Suspect]
     Active Substance: ADALIMUMAB
     Indication: PSORIASIS
     Route: 058

REACTIONS (11)
  - Obesity [Unknown]
  - Cerebral artery occlusion [Unknown]
  - Intracranial aneurysm [Unknown]
  - Dysarthria [Unknown]
  - Cerebrovascular accident [Recovered/Resolved]
  - Epilepsy [Unknown]
  - Cerebral artery thrombosis [Unknown]
  - Embolism [Unknown]
  - Fine motor skill dysfunction [Unknown]
  - Facial paresis [Unknown]
  - Hemiparesis [Unknown]

NARRATIVE: CASE EVENT DATE: 20180306
